FAERS Safety Report 5387676-X (Version None)
Quarter: 2007Q3

REPORT INFORMATION
  Report Type: 
  Country: None (occurrence: None)
  Receive Date: 20070712
  Receipt Date: 20070712
  Transmission Date: 20080115
  Serious: Yes (Hospitalization)
  Sender: FDA-Public Use
  Company Number: None

PATIENT
  Sex: Female
  Weight: 74.5 kg

DRUGS (4)
  1. CARBOPLATIN [Suspect]
     Dosage: 585MG
     Dates: end: 20070424
  2. TAXOL [Suspect]
     Dosage: 310 MG
     Dates: end: 20070424
  3. OXYCODONE HCL [Suspect]
  4. OXYCODONE HCL EXTENDED-RELEASE [Suspect]

REACTIONS (2)
  - ABDOMINAL PAIN [None]
  - CONSTIPATION [None]
